FAERS Safety Report 6102116-0 (Version None)
Quarter: 2009Q1

REPORT INFORMATION
  Report Type: 
  Country: None (occurrence: None)
  Receive Date: 20090304
  Receipt Date: 20090227
  Transmission Date: 20090719
  Serious: Yes (Hospitalization)
  Sender: FDA-Public Use
  Company Number: US-MERCK-0903USA00048

PATIENT
  Age: 88 Year
  Sex: Female

DRUGS (2)
  1. JANUVIA [Suspect]
     Indication: TYPE 2 DIABETES MELLITUS
     Route: 048
     Dates: start: 20080101, end: 20090201
  2. JANUVIA [Suspect]
     Route: 048
     Dates: start: 20090201

REACTIONS (4)
  - BLOOD GLUCOSE INCREASED [None]
  - FALL [None]
  - PRURITUS [None]
  - RASH GENERALISED [None]
